FAERS Safety Report 9596344 (Version 3)
Quarter: 2014Q1

REPORT INFORMATION
  Report Type: Spontaneous
  Country: BR (occurrence: BR)
  Receive Date: 20131004
  Receipt Date: 20140218
  Transmission Date: 20141002
  Serious: Yes (Hospitalization, Other)
  Sender: FDA-Public Use
  Company Number: BR-ABBVIE-13P-020-1141857-00

PATIENT
  Age: 32 Year
  Sex: Female
  Weight: 75 kg

DRUGS (29)
  1. HUMIRA [Suspect]
     Indication: ANKYLOSING SPONDYLITIS
     Route: 058
     Dates: start: 20110501, end: 20121210
  2. HUMIRA [Suspect]
     Route: 058
     Dates: start: 20130921
  3. PROGESTERONE [Suspect]
     Indication: PRODUCT USED FOR UNKNOWN INDICATION
     Dosage: NOT REPORTED
  4. PREDNISONE [Concomitant]
     Indication: ANKYLOSING SPONDYLITIS
     Route: 048
     Dates: start: 201205, end: 20121214
  5. PREDNISONE [Concomitant]
     Indication: FIBROMYALGIA
     Dates: start: 20130914
  6. COLCHICINE [Concomitant]
     Indication: BREAST INFLAMMATION
     Route: 048
     Dates: start: 2011, end: 20121214
  7. COLCHICINE [Concomitant]
     Route: 048
     Dates: start: 20130914
  8. OMEPRAZOLE [Concomitant]
     Indication: GASTRIC DISORDER
     Route: 048
     Dates: start: 2010, end: 20121214
  9. OMEPRAZOLE [Concomitant]
     Route: 048
     Dates: start: 20130914
  10. AZATHIOPRINE [Concomitant]
     Indication: ANKYLOSING SPONDYLITIS
     Route: 048
     Dates: start: 2010, end: 20121214
  11. AZATHIOPRINE [Concomitant]
     Dates: start: 20130914
  12. TOPIRAMATE [Concomitant]
     Indication: HEADACHE
     Route: 048
     Dates: start: 2009, end: 20121214
  13. TOPIRAMATE [Concomitant]
     Indication: SOMNOLENCE
     Route: 048
     Dates: start: 20130914
  14. CYMBALTA [Concomitant]
     Indication: FIBROMYALGIA
     Route: 048
     Dates: start: 2010, end: 20121214
  15. CYMBALTA [Concomitant]
     Route: 048
     Dates: start: 20130914
  16. ALENDRONATE SODIUM [Concomitant]
     Indication: BONE DISORDER
     Route: 048
     Dates: start: 2011, end: 20121214
  17. ALENDRONATE SODIUM [Concomitant]
     Route: 048
     Dates: start: 20130914
  18. CITONEURIN [Concomitant]
     Indication: ANAEMIA
     Dosage: FORM OF ADMINISTRATION - AMPOULE
     Dates: start: 201205, end: 20121214
  19. CITONEURIN [Concomitant]
     Route: 050
     Dates: start: 20130914
  20. CALCIUM [Concomitant]
     Indication: MINERAL SUPPLEMENTATION
     Route: 048
     Dates: start: 201211, end: 20121214
  21. CALCIUM [Concomitant]
     Route: 048
     Dates: start: 20130914
  22. CHOLECALCIFEROL (DEPURA) [Concomitant]
     Indication: VITAMIN D
     Route: 048
     Dates: start: 201207, end: 20121214
  23. CHOLECALCIFEROL (DEPURA) [Concomitant]
     Route: 048
     Dates: start: 20130914
  24. MULTIVITAMIN (DAMATER) [Concomitant]
     Indication: PREGNANCY
     Route: 048
     Dates: start: 20121214
  25. PROGESTERONE [Concomitant]
     Indication: PREGNANCY
  26. FIXA CAL [Concomitant]
     Indication: PRODUCT USED FOR UNKNOWN INDICATION
  27. PARACETAMOL [Concomitant]
     Indication: PRODUCT USED FOR UNKNOWN INDICATION
  28. PREGABALIN [Concomitant]
     Indication: PRODUCT USED FOR UNKNOWN INDICATION
  29. TRAMADOL HYDROCHLORIDE [Concomitant]
     Indication: PRODUCT USED FOR UNKNOWN INDICATION

REACTIONS (5)
  - Cyst [Unknown]
  - Arthralgia [Recovering/Resolving]
  - Headache [Recovered/Resolved]
  - Nausea [Recovered/Resolved]
  - Pain [Unknown]
